FAERS Safety Report 5921212-1 (Version None)
Quarter: 2008Q4

REPORT INFORMATION
  Report Type: 
  Country: None (occurrence: None)
  Receive Date: 20081016
  Receipt Date: 20081013
  Transmission Date: 20090506
  Serious: Yes (Death, Hospitalization)
  Sender: FDA-Public Use
  Company Number: IT-ROXANE LABORATORIES, INC.-2008-RO-00123RO

PATIENT
  Age: 67 Year
  Sex: Male

DRUGS (6)
  1. DEXAMETHASONE [Suspect]
     Indication: ADRENAL INSUFFICIENCY
     Dates: start: 20050201
  2. CISPLATIN [Suspect]
     Indication: METASTATIC NEOPLASM
  3. GEMCITABINE [Suspect]
     Indication: METASTATIC NEOPLASM
  4. ZOLEDRONIC ACID [Suspect]
     Indication: METASTATIC NEOPLASM
  5. ACETATE CORTISONE [Suspect]
     Indication: ADRENAL INSUFFICIENCY
     Dates: start: 20050201
  6. THIABENDAZOLE [Concomitant]
     Indication: STRONGYLOIDIASIS

REACTIONS (2)
  - MALIGNANT NEOPLASM PROGRESSION [None]
  - STRONGYLOIDIASIS [None]
